FAERS Safety Report 9034662 (Version 1)
Quarter: 2013Q1

REPORT INFORMATION
  Report Type: Spontaneous
  Country: MX (occurrence: MX)
  Receive Date: 20130128
  Receipt Date: 20130128
  Transmission Date: 20140127
  Serious: Yes (Death)
  Sender: FDA-Public Use
  Company Number: MX-GLAXOSMITHKLINE-A1009798A

PATIENT
  Sex: Male

DRUGS (1)
  1. ZINNAT [Suspect]

REACTIONS (1)
  - Throat cancer [Fatal]
